FAERS Safety Report 21255190 (Version 1)
Quarter: 2022Q3

REPORT INFORMATION
  Report Type: Spontaneous
  Country: US (occurrence: US)
  Receive Date: 20220825
  Receipt Date: 20220825
  Transmission Date: 20221027
  Serious: No
  Sender: FDA-Public Use
  Company Number: US-GLAXOSMITHKLINE-USCH2022029909

PATIENT

DRUGS (1)
  1. ALLI [Suspect]
     Active Substance: ORLISTAT
     Indication: Product used for unknown indication
     Dosage: 3 DF, QD
     Dates: start: 2022, end: 202208

REACTIONS (5)
  - Abdominal discomfort [Recovered/Resolved]
  - Illness [Recovered/Resolved]
  - Diarrhoea [Recovered/Resolved]
  - Faeces discoloured [Recovered/Resolved]
  - Drug ineffective [Unknown]
